FAERS Safety Report 9655396 (Version 2)
Quarter: 2013Q4

REPORT INFORMATION
  Report Type: Spontaneous
  Country: US (occurrence: US)
  Receive Date: 20131029
  Receipt Date: 20131029
  Transmission Date: 20140711
  Serious: No
  Sender: FDA-Public Use
  Company Number: US-PURDUE-USA-2012-0084913

PATIENT
  Age: 52 Year
  Sex: Male
  Weight: 93.42 kg

DRUGS (2)
  1. OXYCONTIN (NDA 22-272) [Suspect]
     Indication: PAIN
     Dosage: 10 MG, BID
     Route: 048
     Dates: start: 20110601
  2. OXYCODONE HCL IR CAPSULES [Concomitant]
     Indication: PAIN
     Dosage: 20 MG, Q4H
     Route: 048
     Dates: start: 201201

REACTIONS (2)
  - Medication residue present [Recovered/Resolved]
  - Inadequate analgesia [Recovered/Resolved]
